FAERS Safety Report 6178975-2 (Version None)
Quarter: 2009Q2

REPORT INFORMATION
  Report Type: 
  Country: None (occurrence: None)
  Receive Date: 20090505
  Receipt Date: 20090423
  Transmission Date: 20091009
  Serious: Yes (Life-Threatening)
  Sender: FDA-Public Use
  Company Number: JP-PFIZER INC-2009200229

PATIENT

DRUGS (1)
  1. SUNITINIB MALATE [Suspect]
     Indication: GASTROINTESTINAL STROMAL TUMOUR
     Dosage: UNK
     Route: 048
     Dates: end: 20090401

REACTIONS (1)
  - DISSEMINATED INTRAVASCULAR COAGULATION [None]
